FAERS Safety Report 11821867 (Version 1)
Quarter: 2015Q4

REPORT INFORMATION
  Report Type: Spontaneous
  Country: US (occurrence: US)
  Receive Date: 20151210
  Receipt Date: 20151210
  Transmission Date: 20160305
  Serious: No
  Sender: FDA-Public Use
  Company Number: US-JNJFOC-20150511759

PATIENT
  Sex: Male

DRUGS (13)
  1. SYMBICORT [Concomitant]
     Active Substance: BUDESONIDE\FORMOTEROL FUMARATE DIHYDRATE
  2. ZANTAC [Concomitant]
     Active Substance: RANITIDINE HYDROCHLORIDE
  3. NIFEDIPINE. [Concomitant]
     Active Substance: NIFEDIPINE
  4. SOMA [Concomitant]
     Active Substance: CARISOPRODOL
  5. VENTOLIN [Concomitant]
     Active Substance: ALBUTEROL SULFATE
  6. MONTELUKAST [Concomitant]
     Active Substance: MONTELUKAST SODIUM
  7. BYSTOLIC [Concomitant]
     Active Substance: NEBIVOLOL HYDROCHLORIDE
  8. SPIRIVA [Concomitant]
     Active Substance: TIOTROPIUM BROMIDE MONOHYDRATE
  9. XANAX [Concomitant]
     Active Substance: ALPRAZOLAM
  10. IMBRUVICA [Suspect]
     Active Substance: IBRUTINIB
     Indication: CHRONIC LYMPHOCYTIC LEUKAEMIA
     Route: 048
  11. IMBRUVICA [Suspect]
     Active Substance: IBRUTINIB
     Indication: CHRONIC LYMPHOCYTIC LEUKAEMIA
     Route: 048
     Dates: start: 20150416
  12. LISINOPRIL. [Concomitant]
     Active Substance: LISINOPRIL
  13. OXYCODONE [Concomitant]
     Active Substance: OXYCODONE

REACTIONS (10)
  - Diarrhoea [Unknown]
  - Hypotension [Unknown]
  - Pain [Unknown]
  - Sinusitis [Unknown]
  - Nausea [Recovered/Resolved]
  - Weight increased [Unknown]
  - Salivary hypersecretion [Recovered/Resolved]
  - Constipation [Recovering/Resolving]
  - Hunger [Not Recovered/Not Resolved]
  - Upper respiratory tract infection [Unknown]

NARRATIVE: CASE EVENT DATE: 2015
